FAERS Safety Report 8002779-9 (Version None)
Quarter: 2011Q4

REPORT INFORMATION
  Report Type: 
  Country: None (occurrence: None)
  Receive Date: 20111222
  Receipt Date: 20111215
  Transmission Date: 20120403
  Serious: Yes (Other)
  Sender: FDA-Public Use
  Company Number: US-US-EMD SERONO, INC.-7079110

PATIENT
  Sex: Female

DRUGS (4)
  1. METFORMIN HCL [Concomitant]
  2. REBIF [Suspect]
     Route: 058
     Dates: start: 20111001
  3. PREDNISONE TAB [Concomitant]
  4. REBIF [Suspect]
     Indication: PRODUCT USED FOR UNKNOWN INDICATION
     Route: 058
     Dates: start: 20050317, end: 20110601

REACTIONS (7)
  - HEADACHE [None]
  - INSOMNIA [None]
  - THYROID CANCER [None]
  - DISEASE PROGRESSION [None]
  - BLOOD GLUCOSE INCREASED [None]
  - HYPERTENSION [None]
  - HOT FLUSH [None]
